FAERS Safety Report 5233597-2 (Version None)
Quarter: 2007Q1

REPORT INFORMATION
  Report Type: 
  Country: None (occurrence: None)
  Receive Date: 20070208
  Receipt Date: 20070129
  Transmission Date: 20070707
  Serious: Yes (Other)
  Sender: FDA-Public Use
  Company Number: PHEH2007US01384

PATIENT
  Age: 44 Year
  Sex: Female

DRUGS (2)
  1. ZELNORM [Suspect]
     Indication: IRRITABLE BOWEL SYNDROME
     Dosage: 6 MG, BID
     Route: 048
     Dates: start: 20020101, end: 20070126
  2. SYNTHROID [Concomitant]
     Indication: THYROID DISORDER

REACTIONS (10)
  - CHOLECYSTECTOMY [None]
  - DIARRHOEA [None]
  - DIZZINESS [None]
  - GASTROOESOPHAGEAL REFLUX DISEASE [None]
  - HEADACHE [None]
  - HYPERTENSION [None]
  - HYSTERECTOMY [None]
  - OESOPHAGEAL OPERATION [None]
  - PARAESTHESIA [None]
  - STOMATITIS [None]
